FAERS Safety Report 10446220 (Version 1)
Quarter: 2014Q3

REPORT INFORMATION
  Report Type: Spontaneous
  Country: NO (occurrence: NO)
  Receive Date: 20140911
  Receipt Date: 20140911
  Transmission Date: 20150326
  Serious: Yes (Other)
  Sender: FDA-Public Use
  Company Number: NO-ROCHE-1460814

PATIENT
  Age: 47 Year
  Sex: Female

DRUGS (1)
  1. XOLAIR [Suspect]
     Active Substance: OMALIZUMAB
     Indication: ASTHMA
     Dosage: VIAL
     Route: 065
     Dates: start: 2010

REACTIONS (2)
  - Menorrhagia [Unknown]
  - Contusion [Unknown]
